FAERS Safety Report 8132222-0 (Version None)
Quarter: 2012Q1

REPORT INFORMATION
  Report Type: 
  Country: None (occurrence: None)
  Receive Date: 20120208
  Receipt Date: 20120119
  Transmission Date: 20120608
  Serious: Yes (Other)
  Sender: FDA-Public Use
  Company Number: 2011DK0355

PATIENT
  Age: 12 Year
  Sex: Male

DRUGS (1)
  1. ORFADIN [Suspect]
     Indication: TYROSINAEMIA
     Dosage: (TWICE DAILY)
     Dates: start: 19981215

REACTIONS (5)
  - AMINO ACID LEVEL DECREASED [None]
  - AMINO ACID LEVEL INCREASED [None]
  - EPILEPSY [None]
  - DRUG INEFFECTIVE [None]
  - COGNITIVE DISORDER [None]
